FAERS Safety Report 13610858 (Version 1)
Quarter: 2017Q2

REPORT INFORMATION
  Report Type: Spontaneous
  Country: US (occurrence: US)
  Receive Date: 20170603
  Receipt Date: 20170603
  Transmission Date: 20170830
  Serious: No
  Sender: FDA-Public Use
  Company Number: None

PATIENT
  Age: 58 Year
  Sex: Female

DRUGS (1)
  1. SIROLUMUS TAB 1MG [Suspect]
     Active Substance: SIROLIMUS

REACTIONS (1)
  - Pruritus [None]

NARRATIVE: CASE EVENT DATE: 20170603
